FAERS Safety Report 5392277-3 (Version None)
Quarter: 2007Q3

REPORT INFORMATION
  Report Type: 
  Country: None (occurrence: None)
  Receive Date: 20070720
  Receipt Date: 20070711
  Transmission Date: 20080115
  Serious: Yes (Death)
  Sender: FDA-Public Use
  Company Number: US-ABBOTT-07P-163-0355242-00

PATIENT
  Sex: Male
  Weight: 22.7 kg

DRUGS (1)
  1. OMNICEF [Suspect]
     Indication: SINUSITIS
     Dates: start: 20061219

REACTIONS (2)
  - PHARYNGEAL OEDEMA [None]
  - RESPIRATORY ARREST [None]
